FAERS Safety Report 5021922-7 (Version None)
Quarter: 2006Q2

REPORT INFORMATION
  Report Type: 
  Country: None (occurrence: None)
  Receive Date: 20060605
  Receipt Date: 20060516
  Transmission Date: 20061013
  Serious: Yes (Hospitalization)
  Sender: FDA-Public Use
  Company Number: US200605004203

PATIENT
  Age: 12 Month
  Sex: Female
  Weight: 2.6 kg

DRUGS (1)
  1. HUMALOG [Suspect]
     Indication: DIABETES MELLITUS INSULIN-DEPENDENT
     Dosage: TRANSPLACENTAL
     Route: 064
     Dates: start: 20020101

REACTIONS (6)
  - DRUG EXPOSURE DURING PREGNANCY [None]
  - DRUG EXPOSURE VIA BREAST MILK [None]
  - INDUCED LABOUR [None]
  - JAUNDICE NEONATAL [None]
  - PREMATURE BABY [None]
  - WEIGHT INCREASED [None]
